FAERS Safety Report 19813112 (Version 1)
Quarter: 2021Q3

REPORT INFORMATION
  Report Type: Spontaneous
  Country: US (occurrence: US)
  Receive Date: 20210907
  Receipt Date: 20210907
  Transmission Date: 20211014
  Serious: No
  Sender: FDA-Public Use
  Company Number: None

PATIENT
  Age: 33 Year
  Sex: Male
  Weight: 103 kg

DRUGS (1)
  1. LEVOFLOXACIN (LEVOFLOXACIN 750MG TAB) [Suspect]
     Active Substance: LEVOFLOXACIN
     Route: 048
     Dates: start: 20210611, end: 20210723

REACTIONS (2)
  - Arthralgia [None]
  - Tendonitis [None]

NARRATIVE: CASE EVENT DATE: 20210723
